FAERS Safety Report 5133842-8 (Version None)
Quarter: 2006Q4

REPORT INFORMATION
  Report Type: 
  Country: None (occurrence: None)
  Receive Date: 20061018
  Receipt Date: 20061002
  Transmission Date: 20070319
  Serious: Yes (Death)
  Sender: FDA-Public Use
  Company Number: 2006000631

PATIENT
  Sex: 0

DRUGS (3)
  1. ROXANOL 100 [Suspect]
  2. HYDROMORPHONE HCL [Suspect]
  3. ALPRAZOLAM [Suspect]

REACTIONS (4)
  - CARDIAC ARREST [None]
  - COMPLETED SUICIDE [None]
  - DRUG ABUSER [None]
  - RESPIRATORY ARREST [None]
